FAERS Safety Report 4394597-8 (Version None)
Quarter: 2004Q3

REPORT INFORMATION
  Report Type: 
  Country: None (occurrence: None)
  Receive Date: 20040708
  Receipt Date: 20040624
  Transmission Date: 20050211
  Serious: Yes (Hospitalization)
  Sender: FDA-Public Use
  Company Number: 2004UW13122

PATIENT
  Age: 77 Year
  Sex: Male

DRUGS (2)
  1. CRESTOR [Suspect]
     Dosage: 10 MG QD PO
     Route: 048
  2. CRESTOR [Suspect]
     Dosage: 10 MG QD PO
     Route: 048

REACTIONS (4)
  - BLOOD CREATINE PHOSPHOKINASE INCREASED [None]
  - CHOLECYSTITIS ACUTE [None]
  - MYOPATHY [None]
  - RENAL FAILURE ACUTE [None]
